FAERS Safety Report 8453825-X (Version None)
Quarter: 2012Q2

REPORT INFORMATION
  Report Type: 
  Country: None (occurrence: None)
  Receive Date: 20120620
  Receipt Date: 20120618
  Transmission Date: 20120825
  Serious: Yes (Life-Threatening)
  Sender: FDA-Public Use
  Company Number: PHHO2012IT008691

PATIENT
  Sex: Female
  Weight: 74 kg

DRUGS (3)
  1. INC424 [Suspect]
     Indication: MYELOFIBROSIS
     Dosage: NO TREATMENT
  2. NILOTINIB [Suspect]
     Dosage: 900 MG, QD
     Dates: start: 20120514, end: 20120527
  3. NILOTINIB [Suspect]
     Dosage: 150 MG, QD

REACTIONS (1)
  - DRUG ADMINISTRATION ERROR [None]
